FAERS Safety Report 10210290 (Version 7)
Quarter: 2015Q2

REPORT INFORMATION
  Report Type: Spontaneous
  Country: US (occurrence: US)
  Receive Date: 20140602
  Receipt Date: 20150529
  Transmission Date: 20150821
  Serious: Yes (Hospitalization, Congenital Anomaly, Other)
  Sender: FDA-Public Use
  Company Number: US-ELI_LILLY_AND_COMPANY-US201405008604

PATIENT
  Age: 0 Year
  Weight: 2.32 kg

DRUGS (5)
  1. FERROUS SULFATE [Concomitant]
     Active Substance: FERROUS SULFATE\FERROUS SULFATE, DRIED
     Route: 064
  2. DILANTIN [Concomitant]
     Active Substance: PHENYTOIN
     Route: 064
  3. PRENATAL VITAMINS                  /01549301/ [Concomitant]
     Active Substance: VITAMINS
     Route: 064
  4. VISTARIL [Concomitant]
     Active Substance: HYDROXYZINE PAMOATE
     Route: 064
  5. PROZAC [Suspect]
     Active Substance: FLUOXETINE HYDROCHLORIDE
     Indication: PRODUCT USED FOR UNKNOWN INDICATION
     Dosage: UNK, UNKNOWN
     Route: 064
     Dates: start: 19951211, end: 19960820

REACTIONS (13)
  - Hypospadias [Unknown]
  - Amniotic fluid volume decreased [Recovered/Resolved]
  - Right atrial dilatation [Unknown]
  - Inguinal hernia [Unknown]
  - Grunting [Unknown]
  - Breech presentation [Recovered/Resolved]
  - Atrial septal defect [Unknown]
  - Foetal exposure during pregnancy [Recovered/Resolved]
  - Urethral meatus stenosis [Unknown]
  - Amniorrhoea [Recovered/Resolved]
  - Urinary tract disorder [Unknown]
  - Bicuspid aortic valve [Unknown]
  - Dilatation ventricular [Unknown]

NARRATIVE: CASE EVENT DATE: 199603
